FAERS Safety Report 8180620-1 (Version None)
Quarter: 2012Q1

REPORT INFORMATION
  Report Type: 
  Country: None (occurrence: None)
  Receive Date: 20120302
  Receipt Date: 20120221
  Transmission Date: 20120608
  Serious: Yes (Hospitalization)
  Sender: FDA-Public Use
  Company Number: JP-EISAI INC-E2090-02012-SPO-JP

PATIENT
  Sex: Female

DRUGS (3)
  1. ZONISAMIDE [Suspect]
     Indication: PARKINSON'S DISEASE
     Route: 048
     Dates: start: 20111001, end: 20120201
  2. REQUIP [Concomitant]
  3. LEVODOPA [Concomitant]

REACTIONS (2)
  - DECREASED APPETITE [None]
  - DECUBITUS ULCER [None]
